FAERS Safety Report 17226435 (Version 2)
Quarter: 2020Q3

REPORT INFORMATION
  Report Type: Report from Study
  Country: BE (occurrence: BE)
  Receive Date: 20200102
  Receipt Date: 20200125
  Transmission Date: 20201104
  Serious: No
  Sender: FDA-Public Use
  Company Number: BE-SEATTLE GENETICS-2019SGN04936

PATIENT
  Age: 29 Year
  Sex: Female
  Weight: 59 kg

DRUGS (19)
  1. METRONIDAZOLE. [Concomitant]
     Active Substance: METRONIDAZOLE
     Indication: RASH
     Dosage: 1 APPLICATION, BID
     Route: 061
     Dates: start: 20191206
  2. BECLOMETHASONE                     /00212601/ [Concomitant]
     Active Substance: BECLOMETHASONE
     Indication: RADIATION INFLAMMATION
     Dosage: 1 SUPPOSITORY, PRN
     Route: 054
     Dates: start: 20191106, end: 20191126
  3. TRAMADOL. [Concomitant]
     Active Substance: TRAMADOL
     Indication: PAIN
     Dosage: 50 MG, PRN
     Route: 048
     Dates: start: 20191209
  4. ELOCOM [Concomitant]
     Active Substance: MOMETASONE FUROATE
     Indication: RASH
     Dosage: 1 APPLICATION, QD, OINTMENT
     Route: 061
     Dates: start: 20191206
  5. PEMBROLIZUMAB. [Suspect]
     Active Substance: PEMBROLIZUMAB
     Indication: CERVIX CANCER METASTATIC
     Dosage: 200 MG, 1Q3W
     Route: 041
     Dates: start: 20191129
  6. COLITOFALK [Concomitant]
     Active Substance: MESALAMINE
     Indication: RADIATION INFLAMMATION
     Dosage: 500 MG, ONCE DAILY
     Route: 054
     Dates: start: 20191016
  7. TRAMADOL. [Concomitant]
     Active Substance: TRAMADOL
     Indication: PELVIC PAIN
  8. DEXERYL                            /01579901/ [Concomitant]
     Active Substance: GLYCERIN\MINERAL OIL\PETROLATUM
     Indication: RASH
     Dosage: 1 APPLICATION, PRN
     Route: 061
     Dates: start: 20191206
  9. TISOTUMAB VEDOTIN. [Suspect]
     Active Substance: TISOTUMAB VEDOTIN
     Indication: CERVIX CANCER METASTATIC
     Dosage: 2.0 MG/KG, Q21D
     Route: 042
     Dates: start: 20191129
  10. LITICAN                            /00690801/ [Concomitant]
     Active Substance: ALIZAPRIDE
     Indication: NAUSEA
     Dosage: 50 MG, PRN
     Route: 048
     Dates: start: 20191202
  11. IBUPROFEN. [Concomitant]
     Active Substance: IBUPROFEN
     Indication: PAIN
     Dosage: 400 MG, PRN
     Route: 048
     Dates: start: 20191213
  12. DAFALGAN [Concomitant]
     Active Substance: ACETAMINOPHEN
     Indication: RADIATION INFLAMMATION
     Dosage: 1 G, PRN
     Route: 048
     Dates: start: 20191007
  13. LAXOBERON [Concomitant]
     Active Substance: SODIUM PICOSULFATE
     Indication: RADIATION INFLAMMATION
     Dosage: 10 DROPS, PRN
     Route: 048
     Dates: start: 20191007
  14. THEALOZ DUO [Concomitant]
     Active Substance: HYALURONATE SODIUM\TREHALOSE
     Indication: PROPHYLAXIS
     Dosage: 1 DROP IN BOTH EYES, PRN
     Route: 047
     Dates: start: 20191129
  15. THEALOZ DUO [Concomitant]
     Active Substance: HYALURONATE SODIUM\TREHALOSE
     Indication: DRY EYE
     Dosage: 1 DROP, SIX TIMES DAILY IN BOTH EYES
     Route: 047
     Dates: start: 20191212
  16. ELOCOM [Concomitant]
     Active Substance: MOMETASONE FUROATE
     Indication: PRURITUS
     Dosage: 1 APPLICATION, QD, LOTION
     Route: 061
     Dates: start: 20191206
  17. VITA POS [Concomitant]
     Active Substance: VITAMIN A PALMITATE
     Indication: DRY EYE
     Dosage: 1 APPLICATION, QD, IN BOTH EYES
     Route: 047
     Dates: start: 20191212
  18. ADCETRIS [Suspect]
     Active Substance: BRENTUXIMAB VEDOTIN
     Indication: WRONG PRODUCT ADMINISTERED
     Dosage: 2 MG/KG, QD
     Route: 042
     Dates: start: 20191220, end: 20191220
  19. SERELYS [Concomitant]
     Indication: MENOPAUSAL SYMPTOMS
     Dosage: 1 TABLET, QD
     Route: 048
     Dates: start: 201909

REACTIONS (1)
  - Wrong product administered [Not Recovered/Not Resolved]

NARRATIVE: CASE EVENT DATE: 20191220
